FAERS Safety Report 13514475 (Version 1)
Quarter: 2017Q2

REPORT INFORMATION
  Report Type: Spontaneous
  Country: PR (occurrence: PR)
  Receive Date: 20170504
  Receipt Date: 20170504
  Transmission Date: 20170830
  Serious: No
  Sender: FDA-Public Use
  Company Number: PR-ABBVIE-16P-131-1757155-00

PATIENT
  Age: 37 Year
  Sex: Male

DRUGS (4)
  1. VITAMIN [Concomitant]
     Active Substance: VITAMINS
     Indication: PANCREATITIS CHRONIC
  2. IDURONATE [Concomitant]
     Indication: PANCREATITIS CHRONIC
  3. CREON [Suspect]
     Active Substance: PANCRELIPASE AMYLASE\PANCRELIPASE LIPASE\PANCRELIPASE PROTEASE
     Indication: PANCREATITIS CHRONIC
     Dosage: 36,000 USP UNITS OF LIPASE; 114,000 USP UNITS OF PROTEASE; 180,000 USP UNITS OF AMYLASE
     Route: 048
  4. IRON [Concomitant]
     Active Substance: IRON
     Indication: PANCREATITIS CHRONIC

REACTIONS (2)
  - Constipation [Not Recovered/Not Resolved]
  - Incorrect dose administered [Unknown]
